FAERS Safety Report 5429180-6 (Version None)
Quarter: 2007Q3

REPORT INFORMATION
  Report Type: 
  Country: None (occurrence: None)
  Receive Date: 20070827
  Receipt Date: 20070821
  Transmission Date: 20080115
  Serious: No
  Sender: FDA-Public Use
  Company Number: 017571

PATIENT
  Sex: Male
  Weight: 97.1 kg

DRUGS (2)
  1. CLARAVIS [Suspect]
     Indication: ACNE
     Dosage: 40 MG, QOD, ORAL; 80 MG, QOD, ORAL
     Route: 048
     Dates: start: 20070405, end: 20070620
  2. CLARAVIS [Suspect]
     Indication: ACNE
     Dosage: 40 MG, QOD, ORAL; 80 MG, QOD, ORAL
     Route: 048
     Dates: start: 20070405, end: 20070620

REACTIONS (1)
  - JOINT INJURY [None]
